FAERS Safety Report 12435856 (Version 1)
Quarter: 2016Q2

REPORT INFORMATION
  Report Type: Spontaneous
  Country: US (occurrence: US)
  Receive Date: 20160603
  Receipt Date: 20160603
  Transmission Date: 20160815
  Serious: No
  Sender: FDA-Public Use
  Company Number: US-ASTRAZENECA-2016SE56017

PATIENT
  Sex: Female

DRUGS (1)
  1. MOVANTIK [Suspect]
     Active Substance: NALOXEGOL OXALATE
     Route: 048

REACTIONS (5)
  - Flatulence [Unknown]
  - Impaired gastric emptying [Unknown]
  - Rheumatoid arthritis [Unknown]
  - Gastrointestinal hypermotility [Unknown]
  - Osteoarthritis [Unknown]
